FAERS Safety Report 4640911-5 (Version None)
Quarter: 2005Q2

REPORT INFORMATION
  Report Type: 
  Country: None (occurrence: None)
  Receive Date: 20050324
  Receipt Date: 20050127
  Transmission Date: 20051028
  Serious: No
  Sender: FDA-Public Use
  Company Number: 212053

PATIENT
  Sex: Female

DRUGS (3)
  1. AVASTIN [Suspect]
  2. TAXOTERE [Concomitant]
  3. RADIATION (RADIATION THERAPY) [Concomitant]

REACTIONS (1)
  - RADIATION SKIN INJURY [None]
